FAERS Safety Report 24691725 (Version 2)
Quarter: 2025Q1

REPORT INFORMATION
  Report Type: Spontaneous
  Country: JP (occurrence: JP)
  Receive Date: 20241203
  Receipt Date: 20250128
  Transmission Date: 20250409
  Serious: Yes (Other)
  Sender: BAYER HEALTHCARE PHARMACEUTICALS INC.
  Company Number: JP-BAYER-2024A159513

PATIENT
  Age: 60 Year
  Sex: Male

DRUGS (11)
  1. NUBEQA [Suspect]
     Active Substance: DAROLUTAMIDE
     Indication: Prostate cancer
     Dates: start: 20240925, end: 20241001
  2. DOCETAXEL [Suspect]
     Active Substance: DOCETAXEL
     Indication: Prostate cancer
     Dates: start: 20240925, end: 20240925
  3. Fosrenol 250 mg [Concomitant]
     Indication: Dialysis
     Dosage: 500 MG, TID
     Dates: start: 20240928
  4. RABEPRAZOLE SODIUM [Concomitant]
     Active Substance: RABEPRAZOLE SODIUM
     Indication: Dialysis
     Dosage: 10 MG, QD
     Dates: start: 20240928
  5. Febuxostat chemiphar [Concomitant]
     Indication: Dialysis
     Dosage: 20 MG, QD
     Dates: start: 20240928
  6. AZILSARTAN KAMEDOXOMIL [Concomitant]
     Active Substance: AZILSARTAN KAMEDOXOMIL
     Indication: Dialysis
     Dosage: 20 MG, QD
     Dates: start: 20240928
  7. EPINASTINE [Concomitant]
     Active Substance: EPINASTINE
     Indication: Dialysis
     Dosage: 20 MG, QD
     Dates: start: 20240928
  8. PREDONINE [Concomitant]
     Active Substance: PREDNISOLONE
     Dosage: 10 MG, QD
     Dates: start: 20240928
  9. CALCIUM POLYSTYRENE SULFONATE [Concomitant]
     Active Substance: CALCIUM POLYSTYRENE SULFONATE
     Indication: Dialysis
     Dosage: 5.6 G, QD
     Dates: start: 20240928
  10. DOXAZOSIN [Concomitant]
     Active Substance: DOXAZOSIN MESYLATE
     Indication: Dialysis
     Dosage: 1 MG, QD
     Dates: start: 20240928
  11. DOXAZOSIN [Concomitant]
     Active Substance: DOXAZOSIN MESYLATE
     Indication: Hypertension

REACTIONS (3)
  - Cerebral haemorrhage [Recovered/Resolved]
  - Febrile neutropenia [Recovered/Resolved]
  - Dysarthria [Recovered/Resolved]

NARRATIVE: CASE EVENT DATE: 20241001
